FAERS Safety Report 6596238-8 (Version None)
Quarter: 2010Q1

REPORT INFORMATION
  Report Type: 
  Country: None (occurrence: None)
  Receive Date: 20100223
  Receipt Date: 20100215
  Transmission Date: 20100710
  Serious: Yes (Other)
  Sender: FDA-Public Use
  Company Number: ES-ROCHE-685595

PATIENT
  Sex: Female

DRUGS (2)
  1. BONIVA [Suspect]
     Indication: OSTEOPOROSIS
     Route: 048
     Dates: start: 20091101, end: 20091101
  2. BONIVA [Suspect]
     Route: 048
     Dates: start: 20100201, end: 20100201

REACTIONS (2)
  - MUSCLE RIGIDITY [None]
  - SYNCOPE [None]
